FAERS Safety Report 11837774 (Version 2)
Quarter: 2015Q4

REPORT INFORMATION
  Report Type: Spontaneous
  Country: US (occurrence: US)
  Receive Date: 20151215
  Receipt Date: 20151231
  Transmission Date: 20160305
  Serious: Yes (Other)
  Sender: FDA-Public Use
  Company Number: US-SA-2015SA209715

PATIENT
  Age: 70 Year

DRUGS (2)
  1. FLUDARA [Suspect]
     Active Substance: FLUDARABINE PHOSPHATE
     Dosage: DAYS 1-3, Q4 WEEKS
     Route: 042
     Dates: start: 20100414, end: 20130108
  2. CYTOXAN [Concomitant]
     Active Substance: CYCLOPHOSPHAMIDE
     Dosage: DAYS1-3, Q4WEEKS
     Route: 042
     Dates: start: 20100414, end: 20130108

REACTIONS (3)
  - Urinary tract infection [Unknown]
  - Mania [Unknown]
  - Neutropenia [Unknown]

NARRATIVE: CASE EVENT DATE: 20100527
